FAERS Safety Report 13473327 (Version 1)
Quarter: 2017Q2

REPORT INFORMATION
  Report Type: Spontaneous
  Country: US (occurrence: US)
  Receive Date: 20170424
  Receipt Date: 20170424
  Transmission Date: 20170830
  Serious: Yes (Hospitalization)
  Sender: FDA-Public Use
  Company Number: US-ASTELLAS-2016US038205

PATIENT
  Age: 73 Year
  Sex: Male

DRUGS (2)
  1. LEXISCAN [Suspect]
     Active Substance: REGADENOSON
     Indication: CHEST PAIN
     Dosage: 0.4 MG, UNKNOWN FREQ.
     Route: 065
     Dates: start: 20160928, end: 20160928
  2. LEXISCAN [Suspect]
     Active Substance: REGADENOSON
     Indication: SCAN MYOCARDIAL PERFUSION

REACTIONS (4)
  - Blood pressure decreased [Recovered/Resolved]
  - Atrioventricular block first degree [Recovered/Resolved]
  - Atrioventricular block complete [Recovered/Resolved]
  - Heart rate decreased [Recovered/Resolved]

NARRATIVE: CASE EVENT DATE: 20160928
